FAERS Safety Report 9242218 (Version 1)
Quarter: 2013Q2

REPORT INFORMATION
  Report Type: Spontaneous
  Country: US (occurrence: US)
  Receive Date: 20130419
  Receipt Date: 20130419
  Transmission Date: 20140414
  Serious: No
  Sender: FDA-Public Use
  Company Number: US-FOUGERA-2012FO001120

PATIENT
  Age: 55 Year
  Sex: Female
  Weight: 60.33 kg

DRUGS (8)
  1. CLOBETASOL PROPIONATE [Suspect]
     Indication: LICHEN SCLEROSUS
     Route: 061
     Dates: start: 20120422, end: 20120523
  2. ENBREL [Concomitant]
     Indication: RHEUMATOID ARTHRITIS
     Route: 030
     Dates: start: 199712
  3. PROZAC [Concomitant]
     Indication: MOOD SWINGS
     Route: 048
  4. SYNTHROID [Concomitant]
     Indication: THYROID DISORDER
     Route: 048
  5. LIOTHYRONINE [Concomitant]
     Indication: THYROID DISORDER
     Route: 048
     Dates: start: 201108
  6. PROMETRIUM /00110701/ [Concomitant]
     Indication: HORMONE REPLACEMENT THERAPY
     Route: 048
     Dates: start: 2010
  7. VIVELLE DOT [Concomitant]
     Indication: HORMONE REPLACEMENT THERAPY
     Dates: start: 2010
  8. PILOCARPINE [Concomitant]
     Indication: SJOGREN^S SYNDROME
     Dates: start: 2002

REACTIONS (11)
  - Oropharyngeal pain [Recovering/Resolving]
  - Throat irritation [Recovering/Resolving]
  - Dysphagia [Recovering/Resolving]
  - Dyspnoea [Recovering/Resolving]
  - Chest discomfort [Recovering/Resolving]
  - Cough [Recovering/Resolving]
  - Lower extremity mass [Unknown]
  - Rash [Unknown]
  - Off label use [Recovered/Resolved]
  - Incorrect drug administration duration [Recovered/Resolved]
  - Application site pain [Recovered/Resolved]
